FAERS Safety Report 24366756 (Version 1)
Quarter: 2024Q3

REPORT INFORMATION
  Report Type: Spontaneous
  Country: FR (occurrence: FR)
  Receive Date: 20240926
  Receipt Date: 20240926
  Transmission Date: 20241017
  Serious: Yes (Life-Threatening, Other)
  Sender: CHEPLAPHARM
  Company Number: None

PATIENT
  Age: 10 Year
  Sex: Female
  Weight: 28 kg

DRUGS (50)
  1. HEPARIN SODIUM [Suspect]
     Active Substance: HEPARIN SODIUM
     Indication: Thrombosis prophylaxis
     Dosage: DOSAGE FORM: SOLUTION FOR SUBCUTANEOUS INJECTION, 5000 IU/0.2 ML
     Route: 042
     Dates: start: 20240616, end: 20240619
  2. AMPHOTERICIN B [Suspect]
     Active Substance: AMPHOTERICIN B
     Indication: Antifungal prophylaxis
     Route: 048
     Dates: start: 20240608
  3. PREDNISOLONE [Suspect]
     Active Substance: PREDNISOLONE
     Route: 048
     Dates: start: 20240707
  4. VALGANCICLOVIR [Suspect]
     Active Substance: VALGANCICLOVIR
     Indication: Antiviral prophylaxis
     Dosage: 50 MG/ML,
     Route: 042
     Dates: start: 20240617
  5. MIDAZOLAM [Suspect]
     Active Substance: MIDAZOLAM
     Indication: Sedation
     Route: 042
     Dates: start: 20240607
  6. GANCICLOVIR [Suspect]
     Active Substance: GANCICLOVIR
     Indication: Antiviral prophylaxis
     Route: 042
     Dates: start: 20240608, end: 20240617
  7. CEFTAZIDIME [Suspect]
     Active Substance: CEFTAZIDIME
     Indication: Pseudomonas infection
     Route: 042
     Dates: start: 20240613, end: 20240621
  8. EPINEPHRINE [Suspect]
     Active Substance: EPINEPHRINE
     Indication: Vasopressive therapy
     Route: 042
     Dates: start: 20240607, end: 20240621
  9. PIPERACILLIN AND TAZOBACTAM [Suspect]
     Active Substance: PIPERACILLIN SODIUM\TAZOBACTAM SODIUM
     Indication: Pseudomonas infection
     Route: 042
     Dates: start: 20240612, end: 20240612
  10. PIPERACILLIN AND TAZOBACTAM [Suspect]
     Active Substance: PIPERACILLIN SODIUM\TAZOBACTAM SODIUM
     Indication: Pseudomonas infection
     Route: 042
     Dates: start: 20240622, end: 20240717
  11. NOREPINEPHRINE [Suspect]
     Active Substance: NOREPINEPHRINE\NOREPINEPHRINE BITARTRATE
     Indication: Vasopressive therapy
     Route: 042
     Dates: start: 20240607, end: 20240612
  12. NOREPINEPHRINE [Suspect]
     Active Substance: NOREPINEPHRINE\NOREPINEPHRINE BITARTRATE
     Indication: Vasopressive therapy
     Route: 042
     Dates: start: 20240628, end: 20240707
  13. CELLCEPT [Suspect]
     Active Substance: MYCOPHENOLATE MOFETIL
     Indication: Prophylaxis against transplant rejection
     Route: 048
     Dates: start: 20240607
  14. BACTRIM [Suspect]
     Active Substance: SULFAMETHOXAZOLE\TRIMETHOPRIM
     Indication: Antifungal prophylaxis
     Route: 048
     Dates: start: 20240611
  15. AMIKACIN [Suspect]
     Active Substance: AMIKACIN
     Indication: Septic shock
     Dates: start: 20240612, end: 20240612
  16. CEFAZOLIN SODIUM [Suspect]
     Active Substance: CEFAZOLIN SODIUM
     Indication: Antibiotic prophylaxis
     Route: 042
     Dates: start: 20240607, end: 20240613
  17. SUFENTANIL [Suspect]
     Active Substance: SUFENTANIL
     Indication: Analgesic therapy
     Route: 042
     Dates: start: 20240607, end: 20240620
  18. SUFENTANIL [Suspect]
     Active Substance: SUFENTANIL
     Indication: Analgesic therapy
     Route: 042
     Dates: start: 20240701, end: 20240706
  19. NICARDIPINE [Suspect]
     Active Substance: NICARDIPINE
     Indication: Hypertension
     Dosage: 10 MG/10 ML
     Route: 042
     Dates: start: 20240609, end: 20240616
  20. TACROLIMUS [Suspect]
     Active Substance: TACROLIMUS
     Indication: Prophylaxis against transplant rejection
     Route: 048
     Dates: start: 20240607
  21. ACETAMINOPHEN [Suspect]
     Active Substance: ACETAMINOPHEN
     Indication: Analgesic therapy
     Route: 048
     Dates: start: 20240617
  22. SOLU-MEDROL [Suspect]
     Active Substance: METHYLPREDNISOLONE SODIUM SUCCINATE
     Indication: Prophylaxis against transplant rejection
     Route: 042
     Dates: start: 20240607, end: 20240617
  23. PANTOPRAZOLE [Suspect]
     Active Substance: PANTOPRAZOLE
     Indication: Prophylaxis against gastrointestinal ulcer
     Route: 042
     Dates: start: 20240617
  24. AMBISOME [Suspect]
     Active Substance: AMPHOTERICIN B
     Indication: Antifungal prophylaxis
     Dosage: DOSAGE FORM: POWDER FOR LIPOSOME SUSPENSION FOR ?INFUSION
     Route: 055
     Dates: start: 20240608
  25. FUROSEMIDE [Suspect]
     Active Substance: FUROSEMIDE
     Indication: Fluid retention
     Route: 042
     Dates: start: 20240612
  26. DEXMEDETOMIDINE HYDROCHLORIDE [Suspect]
     Active Substance: DEXMEDETOMIDINE HYDROCHLORIDE
     Indication: Sedation
     Dosage: 100 MICROGRAMS/ML
     Route: 042
     Dates: start: 20240607
  27. NYSTATIN [Suspect]
     Active Substance: NYSTATIN
     Indication: Antifungal prophylaxis
     Route: 048
     Dates: start: 20240617, end: 20240710
  28. PROPOFOL [Suspect]
     Active Substance: PROPOFOL
     Dates: start: 20240620, end: 20240621
  29. VANCOMYCIN [Suspect]
     Active Substance: VANCOMYCIN
     Dosage: 1 DOSE
     Dates: start: 20240620, end: 20240620
  30. KETAMINE [Suspect]
     Active Substance: KETAMINE
     Dates: start: 20240621, end: 20240706
  31. RITUXIMAB [Suspect]
     Active Substance: RITUXIMAB
     Dates: start: 20240622
  32. RITUXIMAB [Suspect]
     Active Substance: RITUXIMAB
     Dates: start: 20240718
  33. MILRINONE [Suspect]
     Active Substance: MILRINONE
     Dates: start: 20240624, end: 20240715
  34. FOSFOMYCIN [Suspect]
     Active Substance: FOSFOMYCIN
     Dates: start: 20240628, end: 20240717
  35. COLISTIMETHATE SODIUM [Suspect]
     Active Substance: COLISTIMETHATE SODIUM
     Dates: start: 20240628
  36. NITRIC OXIDE [Suspect]
     Active Substance: NITRIC OXIDE
     Dates: start: 20240628, end: 20240704
  37. CASPOFUNGIN [Suspect]
     Active Substance: CASPOFUNGIN
     Dates: end: 20240628
  38. METRONIDAZOLE [Suspect]
     Active Substance: METRONIDAZOLE
     Dates: start: 20240706
  39. ALBUMIN HUMAN [Suspect]
     Active Substance: ALBUMIN HUMAN
     Route: 042
     Dates: start: 20240707
  40. HYDROXYZINE [Suspect]
     Active Substance: HYDROXYZINE HYDROCHLORIDE
     Dates: start: 20240708
  41. MELATONIN [Suspect]
     Active Substance: MELATONIN
     Dates: start: 20240708
  42. NEFOPAM [Suspect]
     Active Substance: NEFOPAM
     Dates: start: 20240708
  43. PHLOROGLUCINOL [Suspect]
     Active Substance: PHLOROGLUCINOL
     Dates: start: 20240708
  44. CHLORPROMAZINE [Suspect]
     Active Substance: CHLORPROMAZINE
     Dates: start: 20240715, end: 20240719
  45. SERTRALINE [Suspect]
     Active Substance: SERTRALINE HYDROCHLORIDE
     Dates: start: 20240712
  46. AMINO ACIDS\DEXTROSE\ELECTROLYTES NOS\SOYBEAN OIL [Suspect]
     Active Substance: AMINO ACIDS\DEXTROSE\ELECTROLYTES NOS\SOYBEAN OIL
     Dosage: PARENTERAL NUTRITION
  47. PRIMENE [Suspect]
     Active Substance: ALANINE\ARGININE\ASPARTIC ACID\CYSTEINE\GLUTAMIC ACID\GLYCINE\HISTIDINE\ISOLEUCINE\LEUCINE\LYSINE\ME
     Dosage: PARENTERAL NUTRITION
  48. REMODULIN [Concomitant]
     Active Substance: TREPROSTINIL
     Dosage: 37 NG/KG/MIN OR 57720 NG/H OR 1.1 IU/H
  49. REVATIO [Concomitant]
     Active Substance: SILDENAFIL CITRATE
     Dosage: TID?DAILY DOSE: 60 MILLIGRAM
     Route: 048
  50. TRACLEER [Concomitant]
     Active Substance: BOSENTAN
     Dosage: DAILY DOSE: 96 MILLIGRAM
     Route: 048

REACTIONS (2)
  - Myocardial calcification [Recovering/Resolving]
  - Septic shock [Unknown]

NARRATIVE: CASE EVENT DATE: 20240612
